FAERS Safety Report 4655653-X (Version None)
Quarter: 2005Q2

REPORT INFORMATION
  Report Type: 
  Country: None (occurrence: None)
  Receive Date: 20050505
  Receipt Date: 20050422
  Transmission Date: 20051028
  Serious: Yes (Hospitalization)
  Sender: FDA-Public Use
  Company Number: KII-2005-0016334

PATIENT
  Age: 60 Year
  Sex: Male

DRUGS (6)
  1. OXYCONTIN [Suspect]
     Dosage: ORAL
     Route: 048
  2. ANTIEPILEPTICS () [Suspect]
     Dosage: ORAL
     Route: 048
  3. AMITRIPTYLINE HCL [Suspect]
     Dosage: ORAL
     Route: 048
  4. SSRI () [Suspect]
     Dosage: ORAL
     Route: 048
  5. ANTINEOPLASTIC AGENTS () [Suspect]
     Dosage: ORAL
     Route: 048
  6. CARDIAC GLYCOSIDES [Concomitant]

REACTIONS (3)
  - HALLUCINATION [None]
  - MULTIPLE DRUG OVERDOSE ACCIDENTAL [None]
  - WRONG DRUG ADMINISTERED [None]
